FAERS Safety Report 20166874 (Version 1)
Quarter: 2021Q4

REPORT INFORMATION
  Report Type: Spontaneous
  Country: US (occurrence: US)
  Receive Date: 20211209
  Receipt Date: 20211209
  Transmission Date: 20220304
  Serious: Yes (Hospitalization)
  Sender: FDA-Public Use
  Company Number: US-UNITED THERAPEUTICS-UNT-2021-024989

PATIENT
  Age: 26 Year
  Sex: Female
  Weight: 74.83 kg

DRUGS (4)
  1. REMODULIN [Suspect]
     Active Substance: TREPROSTINIL
     Indication: Pulmonary arterial hypertension
     Dosage: UNK, CONTINUING
     Route: 058
     Dates: start: 20210527
  2. REMODULIN [Suspect]
     Active Substance: TREPROSTINIL
     Dosage: 0.0202 ?G/KG, CONTINUING
     Route: 058
     Dates: start: 2021
  3. LETAIRIS [Concomitant]
     Active Substance: AMBRISENTAN
     Indication: Product used for unknown indication
     Dosage: UNK
     Route: 065
  4. ADCIRCA [Concomitant]
     Active Substance: TADALAFIL
     Indication: Pulmonary arterial hypertension
     Dosage: UNK
     Route: 065

REACTIONS (2)
  - Haemoptysis [Unknown]
  - Fatigue [Unknown]

NARRATIVE: CASE EVENT DATE: 20211122
